FAERS Safety Report 8045481-X (Version None)
Quarter: 2012Q1

REPORT INFORMATION
  Report Type: 
  Country: None (occurrence: None)
  Receive Date: 20120113
  Receipt Date: 20120105
  Transmission Date: 20120608
  Serious: Yes (Congenital Anomaly, Other)
  Sender: FDA-Public Use
  Company Number: GB-GILEAD-2011-0044197

PATIENT
  Sex: Male

DRUGS (13)
  1. NORVIR [Suspect]
     Indication: HIV INFECTION
     Dosage: 100 MG, QD
     Route: 064
     Dates: start: 20100915, end: 20110913
  2. ATAZANAVIR [Suspect]
     Indication: HIV INFECTION
     Dosage: 300 MG, QD
     Route: 064
     Dates: start: 20100915, end: 20110913
  3. EFAVIRENZ [Suspect]
     Indication: HIV INFECTION
     Dosage: 600 MG, QD
     Route: 064
     Dates: start: 20100316, end: 20100615
  4. RAMIPRIL [Concomitant]
     Route: 064
  5. EFAVIRENZ/EMTRICITABINE/TENOFOVIR DISOPROXIL FUMARATE [Suspect]
     Indication: HIV INFECTION
     Dosage: 1 DF, QD
     Route: 064
     Dates: start: 20110913
  6. METFORMIN HCL [Concomitant]
     Route: 064
  7. EMTRICITABINE/TENOFOVIR DISOPROXIL FUMARATE [Suspect]
     Indication: HIV INFECTION
     Dosage: 1 DF, QD
     Route: 064
     Dates: start: 20100915, end: 20110913
  8. EMTRICITABINE/TENOFOVIR DISOPROXIL FUMARATE [Suspect]
     Dosage: 1 UNK, UNK
     Route: 064
     Dates: start: 20100316, end: 20100615
  9. EFAVIRENZ/EMTRICITABINE/TENOFOVIR DISOPROXIL FUMARATE [Suspect]
     Dosage: 1 DF, QD
     Route: 064
     Dates: start: 20100615, end: 20100915
  10. FERROUS SULFATE TAB [Concomitant]
     Route: 064
  11. ASPIRIN [Concomitant]
     Route: 064
  12. INSULIN [Concomitant]
     Route: 064
  13. LABETALOL HCL [Concomitant]
     Route: 064

REACTIONS (6)
  - ULTRASOUND ANTENATAL SCREEN ABNORMAL [None]
  - CONJUNCTIVAL HAEMORRHAGE [None]
  - FACIAL PARESIS [None]
  - FOETAL EXPOSURE DURING PREGNANCY [None]
  - RESPIRATORY DISTRESS [None]
  - CONGENITAL TERATOMA [None]
